FAERS Safety Report 5411986-0 (Version None)
Quarter: 2007Q3

REPORT INFORMATION
  Report Type: 
  Country: None (occurrence: None)
  Receive Date: 20070810
  Receipt Date: 20070810
  Transmission Date: 20080115
  Serious: Yes (Other)
  Sender: FDA-Public Use
  Company Number: None

PATIENT
  Sex: Female
  Weight: 58.9676 kg

DRUGS (1)
  1. LYRICA [Suspect]
     Indication: DIABETIC NEUROPATHY
     Dosage: 100MG  3XDAY  PO
     Route: 048
     Dates: start: 20060529, end: 20070727

REACTIONS (4)
  - AGGRESSION [None]
  - DISORIENTATION [None]
  - DRUG DEPENDENCE [None]
  - SOMNOLENCE [None]
